FAERS Safety Report 7636015-X (Version None)
Quarter: 2011Q3

REPORT INFORMATION
  Report Type: 
  Country: None (occurrence: None)
  Receive Date: 20110726
  Receipt Date: 20110630
  Transmission Date: 20111222
  Serious: No
  Sender: FDA-Public Use
  Company Number: US-MYLANLABS-2011S1013546

PATIENT
  Age: 66 Year
  Sex: Female

DRUGS (7)
  1. M.V.I. [Concomitant]
     Route: 048
  2. SYMBICOCT [Concomitant]
     Indication: ASTHMA
     Route: 045
  3. VERAPAMIL [Concomitant]
     Indication: BLOOD PRESSURE INCREASED
     Route: 048
  4. FLONASE [Concomitant]
     Indication: ASTHMA
     Route: 045
  5. FEMARA [Concomitant]
     Route: 048
  6. LOSARTAN POTASSIUM AND HYDROCHLOROTHIAZIDE [Suspect]
     Indication: BLOOD PRESSURE INCREASED
     Route: 048
     Dates: start: 20110501, end: 20110502
  7. LOSARTAN POTASSIUM AND HYDROCHLOROTHIAZIDE [Suspect]
     Route: 048
     Dates: start: 20110501, end: 20110502

REACTIONS (2)
  - URTICARIA [None]
  - RASH [None]
